FAERS Safety Report 12252786 (Version 2)
Quarter: 2016Q2

REPORT INFORMATION
  Report Type: Spontaneous
  Country: FR (occurrence: FR)
  Receive Date: 20160411
  Receipt Date: 20160412
  Transmission Date: 20160815
  Serious: Yes (Life-Threatening, Hospitalization)
  Sender: FDA-Public Use
  Company Number: PHHY2016FR047070

PATIENT
  Sex: Male

DRUGS (12)
  1. LESCOL [Suspect]
     Active Substance: FLUVASTATIN SODIUM
     Indication: CARDIOMYOPATHY
  2. RAMIPRIL. [Suspect]
     Active Substance: RAMIPRIL
     Indication: HYPERTENSIVE HEART DISEASE
     Dosage: 5 MG, QD
     Route: 048
     Dates: start: 201402, end: 20151229
  3. LASILIX [Suspect]
     Active Substance: FUROSEMIDE
     Indication: CARDIOMYOPATHY
  4. RAMIPRIL. [Suspect]
     Active Substance: RAMIPRIL
     Indication: HYPERTENSION
  5. RAMIPRIL. [Suspect]
     Active Substance: RAMIPRIL
     Indication: CARDIOMYOPATHY
  6. BISOPROLOL FUMARATE. [Concomitant]
     Active Substance: BISOPROLOL FUMARATE
     Indication: CARDIOMYOPATHY
     Dosage: 5 MG, QD
     Route: 048
     Dates: start: 2013
  7. PREVISCAN [Suspect]
     Active Substance: FLUINDIONE
     Indication: ATRIAL FIBRILLATION
     Dosage: 20 MG, ACCORDING TO THE INR (TARGET 2-3)
     Route: 048
     Dates: start: 201402, end: 20151229
  8. LESCOL [Suspect]
     Active Substance: FLUVASTATIN SODIUM
     Indication: GLUCOSE TOLERANCE IMPAIRED
     Dosage: 40 MG, QD
     Route: 048
     Dates: start: 2009, end: 20151229
  9. BISOPROLOL FUMARATE. [Concomitant]
     Active Substance: BISOPROLOL FUMARATE
     Indication: HYPERTENSION
  10. LASILIX [Suspect]
     Active Substance: FUROSEMIDE
     Indication: HYPERTENSIVE HEART DISEASE
     Dosage: 20 MG, QD
     Route: 048
     Dates: start: 201402, end: 20151229
  11. LASILIX [Suspect]
     Active Substance: FUROSEMIDE
     Indication: HYPERTENSION
  12. CORDARONE [Concomitant]
     Active Substance: AMIODARONE HYDROCHLORIDE
     Indication: PRODUCT USED FOR UNKNOWN INDICATION
     Dosage: 1 DF, 5 TIMES PER WEEK
     Route: 048
     Dates: start: 201403

REACTIONS (1)
  - Ischaemic stroke [Recovering/Resolving]
